FAERS Safety Report 23187366 (Version 1)
Quarter: 2023Q4

REPORT INFORMATION
  Report Type: Report from Study
  Country: GB (occurrence: GB)
  Receive Date: 20231115
  Receipt Date: 20231115
  Transmission Date: 20240110
  Serious: Yes (Hospitalization)
  Sender: FDA-Public Use
  Company Number: GB-ALXN-A202310199

PATIENT
  Age: 3 Year
  Sex: Female

DRUGS (69)
  1. KANUMA [Suspect]
     Active Substance: SEBELIPASE ALFA
     Indication: Lysosomal acid lipase deficiency
     Dosage: 3 MILLIGRAM, QW
     Route: 058
     Dates: start: 20160811, end: 201708
  2. KANUMA [Suspect]
     Active Substance: SEBELIPASE ALFA
     Dosage: UNK, QW
     Route: 058
     Dates: start: 201708
  3. KANUMA [Suspect]
     Active Substance: SEBELIPASE ALFA
     Dosage: 12 MILLIGRAM, SINGLE
     Route: 042
  4. KANUMA [Suspect]
     Active Substance: SEBELIPASE ALFA
     Dosage: 15 MILLIGRAM, QW
     Route: 042
  5. KANUMA [Suspect]
     Active Substance: SEBELIPASE ALFA
     Dosage: 12 MILLIGRAM, QW
     Route: 042
  6. KANUMA [Suspect]
     Active Substance: SEBELIPASE ALFA
     Dosage: 3 MILLIGRAM/KILOGRAM
     Route: 065
  7. CALPOL [Concomitant]
     Active Substance: ACETAMINOPHEN
     Indication: Upper respiratory tract infection
     Dosage: UNK
     Route: 048
  8. CALPOL [Concomitant]
     Active Substance: ACETAMINOPHEN
     Indication: Respiratory syncytial virus infection
  9. CEFTRIAXONE [Concomitant]
     Active Substance: CEFTRIAXONE\CEFTRIAXONE SODIUM
     Indication: Conjunctivitis
     Dosage: UNK
     Route: 042
  10. CEFTRIAXONE [Concomitant]
     Active Substance: CEFTRIAXONE\CEFTRIAXONE SODIUM
     Dosage: 420 MILLIGRAM, QD
     Route: 042
  11. CHLORPHENIRAMINE MALEATE [Concomitant]
     Active Substance: CHLORPHENIRAMINE MALEATE
     Indication: Antiallergic therapy
     Dosage: 1 MILLIGRAM, SINGLE
     Route: 048
  12. CHLORPHENIRAMINE MALEATE [Concomitant]
     Active Substance: CHLORPHENIRAMINE MALEATE
     Dosage: 1 MILLIGRAM, QID
     Route: 042
  13. CHLORPHENIRAMINE MALEATE [Concomitant]
     Active Substance: CHLORPHENIRAMINE MALEATE
     Dosage: 1 MILLIGRAM, BID
     Route: 048
  14. CHLORPHENIRAMINE MALEATE [Concomitant]
     Active Substance: CHLORPHENIRAMINE MALEATE
     Dosage: 1 MILLIGRAM, PRN
     Route: 042
  15. CIPROFLOXACIN [Concomitant]
     Active Substance: CIPROFLOXACIN
     Indication: Bacterial infection
     Dosage: 170 MILLIGRAM, 12 HOURLY
     Route: 050
  16. CHOLECALCIFEROL [Concomitant]
     Active Substance: CHOLECALCIFEROL
     Indication: Product used for unknown indication
     Dosage: 0.6 MILLILITER, QD
     Route: 048
  17. DALIVIT [Concomitant]
     Indication: Dehydration
     Dosage: 0.6 MILLILITER, QD
     Route: 050
  18. DIORALYTE                          /00386201/ [Concomitant]
     Indication: Fluid replacement
     Dosage: 1 UNK, PRN
     Route: 050
  19. FRESH FROZEN PLASMA [Concomitant]
     Active Substance: HUMAN PLASMA
     Indication: Gastrostomy
     Dosage: UNK
     Route: 050
  20. HEPARIN SODIUM [Concomitant]
     Active Substance: HEPARIN SODIUM
     Indication: Flushing
     Dosage: 5 MILLILITER, PRN
     Route: 050
  21. HYDROCORTISONE [Concomitant]
     Active Substance: HYDROCORTISONE
     Indication: Antiinflammatory therapy
     Dosage: 25 MILLIGRAM, TID
     Route: 042
  22. HYDROCORTISONE [Concomitant]
     Active Substance: HYDROCORTISONE
     Dosage: 50 MILLIGRAM, QW
     Route: 042
  23. HYDROCORTISONE [Concomitant]
     Active Substance: HYDROCORTISONE
     Dosage: 25 MILLIGRAM, PRN
     Route: 042
  24. IBUPROFEN [Concomitant]
     Active Substance: IBUPROFEN
     Indication: Antiinflammatory therapy
     Dosage: 45 MILLIGRAM, 6 TO 8 HOURLY
     Route: 048
  25. IBUPROFEN [Concomitant]
     Active Substance: IBUPROFEN
     Indication: Body temperature
     Dosage: 20 MILLIGRAM, 6 TO 8 HOURLY
  26. MENADIOL [Concomitant]
     Active Substance: MENADIOL
     Indication: Upper gastrointestinal haemorrhage
     Dosage: 10 MILLIGRAM, QD
     Route: 050
  27. MEROPENEM [Concomitant]
     Active Substance: MEROPENEM
     Indication: Upper respiratory tract infection
     Dosage: UNK
     Route: 042
  28. MEROPENEM [Concomitant]
     Active Substance: MEROPENEM
     Indication: Respiratory syncytial virus infection
  29. OCTREOTIDE [Concomitant]
     Active Substance: OCTREOTIDE
     Indication: Upper gastrointestinal haemorrhage
     Dosage: UNK
     Route: 042
  30. OMEPRAZOLE [Concomitant]
     Active Substance: OMEPRAZOLE
     Indication: Upper gastrointestinal haemorrhage
     Dosage: 10 MILLIGRAM, QD
     Route: 050
  31. ACETAMINOPHEN [Concomitant]
     Active Substance: ACETAMINOPHEN
     Indication: Pain
     Dosage: 85 MILLIGRAM, 4-8 HOURLY
     Route: 050
  32. ACETAMINOPHEN [Concomitant]
     Active Substance: ACETAMINOPHEN
     Indication: Body temperature abnormal
     Dosage: 120 MILLIGRAM, 4 HOURLY
     Route: 048
  33. ACETAMINOPHEN [Concomitant]
     Active Substance: ACETAMINOPHEN
     Dosage: 120 MILLIGRAM, 4 TO 6 HOURLY
     Route: 050
  34. ACETAMINOPHEN [Concomitant]
     Active Substance: ACETAMINOPHEN
     Dosage: 84 MILLIGRAM, 4 TO 6 HOURLY
  35. POTASSIUM [Concomitant]
     Active Substance: POTASSIUM
     Indication: Upper gastrointestinal haemorrhage
     Dosage: UNK
     Route: 065
  36. POTASSIUM [Concomitant]
     Active Substance: POTASSIUM
     Dosage: 2 UNK, BID
     Route: 050
  37. PREDNISOLONE [Concomitant]
     Active Substance: PREDNISOLONE
     Indication: Steroid therapy
     Dosage: 10 MILLIGRAM, QW
     Route: 050
  38. PREDNISOLONE [Concomitant]
     Active Substance: PREDNISOLONE
     Dosage: 10 MILLIGRAM, AT NIGHT
  39. PROPRANOLOL [Concomitant]
     Active Substance: PROPRANOLOL HYDROCHLORIDE
     Indication: Upper gastrointestinal haemorrhage
     Dosage: 11 MILLIGRAM, TID
     Route: 048
  40. PROPRANOLOL [Concomitant]
     Active Substance: PROPRANOLOL HYDROCHLORIDE
     Indication: Hepatic cirrhosis
     Dosage: 13 MILLIGRAM, TID
     Route: 048
  41. PROPRANOLOL [Concomitant]
     Active Substance: PROPRANOLOL HYDROCHLORIDE
     Indication: Varices oesophageal
     Dosage: 15 MILLIGRAM, TID
     Route: 048
  42. PROPRANOLOL [Concomitant]
     Active Substance: PROPRANOLOL HYDROCHLORIDE
     Indication: Portal hypertension
  43. RANITIDINE [Concomitant]
     Active Substance: RANITIDINE
     Indication: Antiallergic therapy
     Dosage: 6 MILLIGRAM, Q8H
     Route: 042
  44. RANITIDINE [Concomitant]
     Active Substance: RANITIDINE
     Indication: Dehydration
     Dosage: 36 MILLIGRAM, BID
     Route: 048
  45. RANITIDINE [Concomitant]
     Active Substance: RANITIDINE
     Indication: Gastrointestinal haemorrhage
     Dosage: 40.5 MILLIGRAM, BID
     Route: 050
  46. RANITIDINE [Concomitant]
     Active Substance: RANITIDINE
     Dosage: 15 MILLIGRAM, BID
     Route: 050
  47. RANITIDINE [Concomitant]
     Active Substance: RANITIDINE
     Dosage: 8 MILLIGRAM, TID
     Route: 042
  48. SALINE NASAL MIST [Concomitant]
     Indication: Nasal irrigation
     Dosage: 1 DROP, PRN
     Route: 050
  49. SODIUM BICARBONATE [Concomitant]
     Active Substance: SODIUM BICARBONATE
     Indication: Dehydration
     Dosage: 4.5 MILLIMOLE, BID
     Route: 048
  50. SODIUM BICARBONATE [Concomitant]
     Active Substance: SODIUM BICARBONATE
     Dosage: 0.5 UNK, TID
     Route: 050
  51. SYTRON [Concomitant]
     Indication: Product used for unknown indication
     Dosage: 2.5 MILLIGRAM, TID
     Route: 050
  52. PIPERACILLIN SODIUM\TAZOBACTAM SODIUM [Concomitant]
     Active Substance: PIPERACILLIN SODIUM\TAZOBACTAM SODIUM
     Indication: Antibiotic therapy
     Dosage: 520 MILLIGRAM, SINGLE
     Route: 042
  53. TEICOPLANIN [Concomitant]
     Active Substance: TEICOPLANIN
     Indication: Enterococcal infection
     Dosage: 86 MILLIGRAM, Q12H
     Route: 042
  54. TEICOPLANIN [Concomitant]
     Active Substance: TEICOPLANIN
     Indication: Antibiotic therapy
     Dosage: 85 MILLIGRAM, Q12H
     Route: 042
  55. TEICOPLANIN [Concomitant]
     Active Substance: TEICOPLANIN
     Indication: Conjunctivitis
     Dosage: 51 MILLIGRAM, QD
     Route: 042
  56. TEICOPLANIN [Concomitant]
     Active Substance: TEICOPLANIN
     Indication: Pyrexia
     Dosage: 50 MILLIGRAM, QD
     Route: 042
  57. TEICOPLANIN [Concomitant]
     Active Substance: TEICOPLANIN
     Dosage: 80 MILLIGRAM, Q12H
     Route: 042
  58. TEICOPLANIN [Concomitant]
     Active Substance: TEICOPLANIN
     Dosage: UNK
     Route: 050
  59. TRANEXAMIC ACID [Concomitant]
     Active Substance: TRANEXAMIC ACID
     Indication: Gastrostomy
     Dosage: UNK
     Route: 050
  60. ERGOCALCIFEROL [Concomitant]
     Active Substance: ERGOCALCIFEROL
     Indication: Upper gastrointestinal haemorrhage
     Dosage: UNK
     Route: 065
  61. TOCOPHEROL [Concomitant]
     Active Substance: TOCOPHEROL
     Indication: Antioxidant therapy
     Dosage: 50 MILLIGRAM, QD
     Route: 050
  62. TOCOPHEROL [Concomitant]
     Active Substance: TOCOPHEROL
     Dosage: 40 MILLIGRAM, QD
     Route: 050
  63. TOCOPHEROL [Concomitant]
     Active Substance: TOCOPHEROL
     Dosage: 50 MILLIGRAM, BID
     Route: 050
  64. TOCOPHEROL [Concomitant]
     Active Substance: TOCOPHEROL
     Dosage: 500 MILLIGRAM, QD
     Route: 050
  65. TOCOPHEROL [Concomitant]
     Active Substance: TOCOPHEROL
     Dosage: 50 MILLIGRAM, QD
     Route: 048
  66. VITAMIN K [Concomitant]
     Active Substance: PHYTONADIONE
     Indication: Upper gastrointestinal haemorrhage
     Dosage: 1 MILLIGRAM, QD
     Route: 050
  67. VITAMIN K [Concomitant]
     Active Substance: PHYTONADIONE
     Indication: Coagulopathy
     Dosage: 1 MILLIGRAM, QD
     Route: 042
  68. VITAMIN K [Concomitant]
     Active Substance: PHYTONADIONE
     Indication: Antioxidant therapy
     Dosage: 1 MILLIGRAM, QD
     Route: 048
  69. VITAMIN K [Concomitant]
     Active Substance: PHYTONADIONE
     Dosage: UNK
     Route: 042

REACTIONS (1)
  - Influenza [Recovered/Resolved]

NARRATIVE: CASE EVENT DATE: 20191129
